FAERS Safety Report 9449543 (Version 3)
Quarter: 2013Q4

REPORT INFORMATION
  Report Type: Spontaneous
  Country: US (occurrence: US)
  Receive Date: 20130809
  Receipt Date: 20131014
  Transmission Date: 20140711
  Serious: No
  Sender: FDA-Public Use
  Company Number: US-009507513-1308USA000061

PATIENT
  Age: 31 Year
  Sex: Female
  Weight: 112.4 kg

DRUGS (1)
  1. IMPLANON [Suspect]
     Indication: CONTRACEPTION
     Dosage: ONE ROD
     Route: 059
     Dates: start: 20110303, end: 20130719

REACTIONS (2)
  - Unintended pregnancy [Recovered/Resolved]
  - Victim of sexual abuse [Unknown]
